FAERS Safety Report 11196832 (Version 2)
Quarter: 2015Q3

REPORT INFORMATION
  Report Type: Spontaneous
  Country: CN (occurrence: CN)
  Receive Date: 20150617
  Receipt Date: 20150703
  Transmission Date: 20151125
  Serious: Yes (Hospitalization)
  Sender: FDA-Public Use
  Company Number: CN-ASTRAZENECA-2015SE57484

PATIENT
  Age: 10 Year
  Sex: Male
  Weight: 40.5 kg

DRUGS (9)
  1. SYMBICORT [Suspect]
     Active Substance: BUDESONIDE\FORMOTEROL FUMARATE DIHYDRATE
     Dosage: 160/4.5 UG, ONE INHALATION TWO TIMES A DAY
     Route: 055
     Dates: start: 201503
  2. FLIXONASE [Concomitant]
     Active Substance: FLUTICASONE PROPIONATE
  3. SYMBICORT [Suspect]
     Active Substance: BUDESONIDE\FORMOTEROL FUMARATE DIHYDRATE
     Dosage: 80 UG, 1 INHALATION TWO TIMES A DAY
     Route: 055
     Dates: start: 2011
  4. SYMBICORT [Suspect]
     Active Substance: BUDESONIDE\FORMOTEROL FUMARATE DIHYDRATE
     Dosage: 80 UG, 2 INHALATIONS TWO TIMES A DAY
     Route: 055
     Dates: start: 201504
  5. RHINOCORT [Suspect]
     Active Substance: BUDESONIDE
     Dosage: 2 SPRAYS
     Route: 045
     Dates: end: 201506
  6. SYMBICORT [Suspect]
     Active Substance: BUDESONIDE\FORMOTEROL FUMARATE DIHYDRATE
     Dosage: 80 UG, 1 INHALATION TWO TIMES A DAY
     Route: 055
  7. LORATADINE. [Concomitant]
     Active Substance: LORATADINE
     Dates: start: 2010, end: 2013
  8. LORATADINE. [Concomitant]
     Active Substance: LORATADINE
     Dates: start: 2013
  9. MONTELUKAST SODIUM. [Concomitant]
     Active Substance: MONTELUKAST SODIUM
     Dates: end: 201506

REACTIONS (19)
  - Pharyngitis [Recovered/Resolved]
  - Toxicity to various agents [Unknown]
  - Hypersensitivity [Unknown]
  - Headache [Unknown]
  - Chronic gastritis [Unknown]
  - Hand-foot-and-mouth disease [Recovered/Resolved]
  - Vomiting [Unknown]
  - Wheezing [Recovered/Resolved]
  - Lower respiratory tract inflammation [Unknown]
  - Oropharyngeal pain [Unknown]
  - Intentional product misuse [Unknown]
  - Pyrexia [Unknown]
  - Immune system disorder [Unknown]
  - Cough [Unknown]
  - Dizziness [Unknown]
  - Nasopharyngitis [Unknown]
  - Weight increased [Unknown]
  - Hair growth abnormal [Recovering/Resolving]
  - Rhinitis allergic [Unknown]

NARRATIVE: CASE EVENT DATE: 2011
